FAERS Safety Report 4322400-0 (Version None)
Quarter: 2004Q1

REPORT INFORMATION
  Report Type: 
  Country: None (occurrence: None)
  Receive Date: 20040323
  Receipt Date: 20040323
  Transmission Date: 20041129
  Serious: Yes (Hospitalization)
  Sender: FDA-Public Use
  Company Number: None

PATIENT
  Sex: Female
  Weight: 86.1834 kg

DRUGS (9)
  1. EFFEXOR XR [Suspect]
     Indication: ANXIETY
     Dosage: 225 MG QD ORAL
     Route: 048
     Dates: start: 20020101, end: 20030214
  2. EFFEXOR XR [Suspect]
     Indication: DEPRESSION
     Dosage: 225 MG QD ORAL
     Route: 048
     Dates: start: 20020101, end: 20030214
  3. PAXIL [Suspect]
     Indication: ANXIETY
     Dosage: 60 MG QD ORAL
     Route: 048
     Dates: start: 20010101, end: 20020101
  4. PAXIL [Suspect]
     Indication: DEPRESSION
     Dosage: 60 MG QD ORAL
     Route: 048
     Dates: start: 20010101, end: 20020101
  5. KLONOPRIN [Concomitant]
  6. AMBIEN [Concomitant]
  7. TYLENOL (CAPLET) [Concomitant]
  8. IBUPROFEN [Concomitant]
  9. MULTIVITAMIN [Concomitant]

REACTIONS (5)
  - CONDITION AGGRAVATED [None]
  - DEPRESSION [None]
  - DRUG INEFFECTIVE [None]
  - DRUG WITHDRAWAL SYNDROME [None]
  - PARANOIA [None]
